FAERS Safety Report 8505844-2 (Version None)
Quarter: 2012Q3

REPORT INFORMATION
  Report Type: 
  Country: None (occurrence: None)
  Receive Date: 20120706
  Receipt Date: 20120706
  Transmission Date: 20120928
  Serious: Yes (Disabling)
  Sender: FDA-Public Use
  Company Number: None

PATIENT
  Sex: Female
  Weight: 54.1 kg

DRUGS (3)
  1. LEVOTHYROXINE SODIUM [Concomitant]
  2. TOPAMAX [Suspect]
     Indication: MIGRAINE
     Dosage: 200 MG NIGHTLY P.O.
     Route: 048
     Dates: start: 20080401, end: 20090501
  3. DIAZEPAM [Concomitant]

REACTIONS (8)
  - AMNESIA [None]
  - WEIGHT DECREASED [None]
  - BLOOD THYROID STIMULATING HORMONE INCREASED [None]
  - COGNITIVE DISORDER [None]
  - PYREXIA [None]
  - NAUSEA [None]
  - ABDOMINAL PAIN [None]
  - AMENORRHOEA [None]
